FAERS Safety Report 4576667-4 (Version None)
Quarter: 2005Q1

REPORT INFORMATION
  Report Type: 
  Country: None (occurrence: None)
  Receive Date: 20050210
  Receipt Date: 20041126
  Transmission Date: 20050727
  Serious: Yes (Hospitalization, Other)
  Sender: FDA-Public Use
  Company Number: PHFR2004GB04410

PATIENT
  Age: 80 Year
  Sex: Female

DRUGS (5)
  1. PHENOBARBITONE [Concomitant]
     Indication: EPILEPSY
     Dosage: 15 MG, BID
     Route: 048
  2. BENZHEXOL [Concomitant]
     Indication: SCHIZOPHRENIA
     Dosage: 5 MG, BID
     Route: 048
  3. DIAZEPAM [Concomitant]
     Indication: AGITATION
     Dosage: 5 MG, TID
     Route: 048
  4. FLUPHENAZINE [Concomitant]
     Indication: AGITATION
     Dosage: 25 MG PRN
     Route: 030
  5. CLOZARIL [Suspect]
     Indication: ACCIDENTAL OVERDOSE
     Dosage: 200MG ONCE
     Route: 048
     Dates: start: 20041126

REACTIONS (6)
  - ACCIDENTAL OVERDOSE [None]
  - CARDIOVASCULAR DISORDER [None]
  - DEPRESSED LEVEL OF CONSCIOUSNESS [None]
  - MEDICATION ERROR [None]
  - SOMNOLENCE [None]
  - TACHYCARDIA [None]
